FAERS Safety Report 10926306 (Version 4)
Quarter: 2015Q3

REPORT INFORMATION
  Report Type: Spontaneous
  Country: PR (occurrence: US)
  Receive Date: 20150318
  Receipt Date: 20150806
  Transmission Date: 20151125
  Serious: No
  Sender: FDA-Public Use
  Company Number: PR-PFIZER INC-2015041322

PATIENT
  Age: 73 Year
  Sex: Male
  Weight: 71 kg

DRUGS (2)
  1. SUTENT [Suspect]
     Active Substance: SUNITINIB MALATE
     Indication: RENAL CANCER METASTATIC
     Dosage: 50 MG, DAILY
     Dates: start: 20150121, end: 20150215
  2. SUTENT [Suspect]
     Active Substance: SUNITINIB MALATE
     Dosage: 12.5 MG, DAILY
     Dates: start: 20150427, end: 20150429

REACTIONS (4)
  - Pyrexia [Unknown]
  - Headache [Unknown]
  - Blood urine present [Unknown]
  - Vomiting [Unknown]
